FAERS Safety Report 17614137 (Version 1)
Quarter: 2020Q2

REPORT INFORMATION
  Report Type: Spontaneous
  Country: US (occurrence: US)
  Receive Date: 20200402
  Receipt Date: 20200402
  Transmission Date: 20200713
  Serious: Yes (Hospitalization, Other)
  Sender: FDA-Public Use
  Company Number: US-AMGEN-USASP2020049631

PATIENT

DRUGS (1)
  1. FILGRASTIM [Suspect]
     Active Substance: FILGRASTIM
     Indication: AUTOIMMUNE NEUTROPENIA
     Dosage: UNK
     Route: 065

REACTIONS (28)
  - Pharyngitis streptococcal [Unknown]
  - Febrile neutropenia [Unknown]
  - Pyrexia [Unknown]
  - Gastroenteritis clostridial [Unknown]
  - Mastoiditis [Unknown]
  - Staphylococcal abscess [Unknown]
  - Paronychia [Unknown]
  - Mouth ulceration [Unknown]
  - Giardiasis [Unknown]
  - Off label use [Unknown]
  - Urinary tract infection [Unknown]
  - Pneumonia [Unknown]
  - Periorbital cellulitis [Unknown]
  - Gingivitis [Unknown]
  - Otitis media acute [Unknown]
  - Cellulitis [Unknown]
  - Gastroenteritis Escherichia coli [Unknown]
  - Ecthyma [Unknown]
  - Influenza [Unknown]
  - Cellulitis staphylococcal [Unknown]
  - Tachycardia [Recovered/Resolved]
  - Pseudomonas infection [Unknown]
  - Skin candida [Unknown]
  - Gastroenteritis [Unknown]
  - Abscess [Unknown]
  - Otitis externa [Unknown]
  - Sinusitis [Unknown]
  - Oral infection [Unknown]
